FAERS Safety Report 17486258 (Version 3)
Quarter: 2020Q3

REPORT INFORMATION
  Report Type: Spontaneous
  Country: FR (occurrence: FR)
  Receive Date: 20200303
  Receipt Date: 20200919
  Transmission Date: 20201102
  Serious: Yes (Other)
  Sender: FDA-Public Use
  Company Number: FR-TEVA-2020-FR-1193729

PATIENT
  Age: 62 Year
  Sex: Female

DRUGS (6)
  1. PROVAMES [Suspect]
     Active Substance: ESTRADIOL
     Route: 048
  2. METFORMINE [Suspect]
     Active Substance: METFORMIN HYDROCHLORIDE
     Indication: DIABETES MELLITUS
     Route: 048
  3. ALPRAZOLAM. [Suspect]
     Active Substance: ALPRAZOLAM
     Dosage: UNKNOWN
     Route: 048
  4. ANDROCUR 50 MG, COMPRIME [Suspect]
     Active Substance: CYPROTERONE ACETATE
     Indication: EPILEPSY
     Dosage: 2 DOSAGE FORMS DAILY; 1 TAB TWICE A DAY
     Route: 048
     Dates: end: 20200128
  5. KEPPRA [Suspect]
     Active Substance: LEVETIRACETAM
     Indication: EPILEPSY
     Dosage: INC
     Route: 048
  6. GLICLAZIDE [Suspect]
     Active Substance: GLICLAZIDE
     Indication: DIABETES MELLITUS
     Dosage: UNKNOWN
     Route: 048

REACTIONS (1)
  - Meningioma [Not Recovered/Not Resolved]

NARRATIVE: CASE EVENT DATE: 202001
